FAERS Safety Report 12144472 (Version 1)
Quarter: 2016Q1

REPORT INFORMATION
  Report Type: Spontaneous
  Country: US (occurrence: None)
  Receive Date: 20160303
  Receipt Date: 20160303
  Transmission Date: 20160526
  Serious: No
  Sender: FDA-Public Use
  Company Number: None

PATIENT
  Age: 63 Year
  Sex: Male
  Weight: 99.79 kg

DRUGS (4)
  1. LEVOTHROXINE SODIUM [Concomitant]
     Active Substance: LEVOTHYROXINE SODIUM
  2. VITAMINS [Concomitant]
     Active Substance: VITAMINS
  3. CO-Q 10 [Concomitant]
  4. ATORVASTATIN CALCIUM. [Suspect]
     Active Substance: ATORVASTATIN CALCIUM
     Indication: BLOOD CHOLESTEROL INCREASED
     Route: 048

REACTIONS (11)
  - Body temperature increased [None]
  - Fatigue [None]
  - Myalgia [None]
  - Oropharyngeal pain [None]
  - Feeling cold [None]
  - Pollakiuria [None]
  - Wheezing [None]
  - Asthenia [None]
  - Disturbance in attention [None]
  - Memory impairment [None]
  - Dyspnoea [None]

NARRATIVE: CASE EVENT DATE: 20160301
